APPROVED DRUG PRODUCT: GASTROGRAFIN
Active Ingredient: DIATRIZOATE MEGLUMINE; DIATRIZOATE SODIUM
Strength: 66%;10%
Dosage Form/Route: SOLUTION;ORAL, RECTAL
Application: N011245 | Product #003 | TE Code: AA
Applicant: BRACCO DIAGNOSTICS INC
Approved: Approved Prior to Jan 1, 1982 | RLD: Yes | RS: Yes | Type: RX